FAERS Safety Report 6244351-7 (Version None)
Quarter: 2009Q2

REPORT INFORMATION
  Report Type: 
  Country: None (occurrence: None)
  Receive Date: 20090625
  Receipt Date: 20090615
  Transmission Date: 20091009
  Serious: Yes (Congenital Anomaly, Other)
  Sender: FDA-Public Use
  Company Number: BR-ROCHE-639333

PATIENT

DRUGS (7)
  1. MYCOPHENOLATE MOFETIL [Suspect]
     Route: 064
     Dates: start: 20030101
  2. MYCOPHENOLATE MOFETIL [Suspect]
     Route: 064
  3. MYCOPHENOLATE MOFETIL [Suspect]
     Route: 064
  4. TACROLIMUS [Suspect]
     Route: 064
  5. PREDNISONE [Suspect]
     Route: 064
     Dates: start: 20030101
  6. PRAVASTATIN [Suspect]
     Indication: DRUG USE FOR UNKNOWN INDICATION
     Route: 064
  7. CARBAMAZEPINE [Concomitant]

REACTIONS (7)
  - CLEFT PALATE [None]
  - EAR MALFORMATION [None]
  - EXTERNAL AUDITORY CANAL ATRESIA [None]
  - MICROPHTHALMOS [None]
  - PULMONARY VALVE STENOSIS [None]
  - UMBILICAL HERNIA [None]
  - UNEVALUABLE EVENT [None]
